FAERS Safety Report 9207269 (Version 2)
Quarter: 2013Q3

REPORT INFORMATION
  Report Type: Spontaneous
  Country: PL (occurrence: PL)
  Receive Date: 20130403
  Receipt Date: 20130702
  Transmission Date: 20140515
  Serious: Yes (Other)
  Sender: FDA-Public Use
  Company Number: PL-UCBSA-081739

PATIENT
  Age: 31 Year
  Sex: Female

DRUGS (2)
  1. KEPPRA [Suspect]
     Indication: CONVULSION
     Dosage: 500-0-1000
     Route: 048
     Dates: start: 2011, end: 20130422
  2. TRILEPTAL [Concomitant]
     Indication: EPILEPSY
     Dosage: 2 X 1200
     Route: 048

REACTIONS (2)
  - Toxoplasmosis [Unknown]
  - Pregnancy [Recovered/Resolved]
